FAERS Safety Report 4409561-X (Version None)
Quarter: 2004Q3

REPORT INFORMATION
  Report Type: 
  Country: None (occurrence: None)
  Receive Date: 20040727
  Receipt Date: 20040727
  Transmission Date: 20050211
  Serious: Yes (Other)
  Sender: FDA-Public Use
  Company Number: None

PATIENT
  Age: 23 Year
  Sex: Male
  Weight: 90 kg

DRUGS (2)
  1. VANCOMYCIN [Suspect]
     Indication: CELLULITIS
     Dosage: 1.5 GM IV Q 12 H
     Route: 042
     Dates: start: 20040716, end: 20040716
  2. VANCOMYCIN [Suspect]

REACTIONS (2)
  - BODY TEMPERATURE INCREASED [None]
  - RASH [None]
